FAERS Safety Report 7597301-5 (Version None)
Quarter: 2011Q3

REPORT INFORMATION
  Report Type: 
  Country: None (occurrence: None)
  Receive Date: 20110708
  Receipt Date: 20110411
  Transmission Date: 20111222
  Serious: No
  Sender: FDA-Public Use
  Company Number: US-GLAXOSMITHKLINE-A0922456A

PATIENT
  Age: 83 Year
  Sex: Male

DRUGS (1)
  1. FLOVENT [Suspect]
     Indication: PRODUCT USED FOR UNKNOWN INDICATION
     Dosage: 8PUFF PER DAY
     Route: 045

REACTIONS (5)
  - OVERDOSE [None]
  - OFF LABEL USE [None]
  - PRODUCT QUALITY ISSUE [None]
  - INCORRECT ROUTE OF DRUG ADMINISTRATION [None]
  - DRUG ADMINISTRATION ERROR [None]
